FAERS Safety Report 21282782 (Version 1)
Quarter: 2022Q3

REPORT INFORMATION
  Report Type: Spontaneous
  Country: CA (occurrence: CA)
  Receive Date: 20220901
  Receipt Date: 20220901
  Transmission Date: 20221027
  Serious: Yes (Life-Threatening, Hospitalization)
  Sender: FDA-Public Use
  Company Number: CA-PFIZER INC-202201110351

PATIENT
  Age: 74 Year
  Sex: Male

DRUGS (14)
  1. PREGABALIN [Suspect]
     Active Substance: PREGABALIN
     Dosage: UNK
  2. ATORVASTATIN [Concomitant]
     Active Substance: ATORVASTATIN
     Dosage: UNK
  3. CALCIUM CARBONATE [Concomitant]
     Active Substance: CALCIUM CARBONATE
     Dosage: UNK
  4. CHOLECALCIFEROL [Concomitant]
     Active Substance: CHOLECALCIFEROL
     Dosage: UNK
  5. DUTASTERIDE [Concomitant]
     Active Substance: DUTASTERIDE
     Dosage: UNK
  6. EPREX [Concomitant]
     Active Substance: ERYTHROPOIETIN
     Dosage: UNK
  7. METOPROLOL [Concomitant]
     Active Substance: METOPROLOL
     Dosage: UNK
  8. VITAMINS NOS [Concomitant]
     Active Substance: VITAMINS
     Dosage: UNK
  9. NITROGLYCERIN [Concomitant]
     Active Substance: NITROGLYCERIN
     Dosage: UNK
  10. PANTOPRAZOLE [Concomitant]
     Active Substance: PANTOPRAZOLE
     Dosage: UNK
  11. SYMBICORT [Concomitant]
     Active Substance: BUDESONIDE\FORMOTEROL FUMARATE DIHYDRATE
     Dosage: UNK
     Route: 055
  12. TAMSULOSIN [Concomitant]
     Active Substance: TAMSULOSIN
     Dosage: UNK
  13. WARFARIN [Concomitant]
     Active Substance: WARFARIN
     Dosage: UNK
  14. ZOPICLONE [Concomitant]
     Active Substance: ZOPICLONE
     Dosage: UNK

REACTIONS (8)
  - Prescribed overdose [Recovered/Resolved]
  - Asthenia [Recovered/Resolved]
  - Cerebrovascular accident [Recovered/Resolved]
  - Diplopia [Recovered/Resolved]
  - Dizziness [Recovered/Resolved]
  - Gait disturbance [Recovered/Resolved]
  - Suicidal ideation [Recovered/Resolved]
  - Transient ischaemic attack [Recovered/Resolved]
